FAERS Safety Report 17438420 (Version 1)
Quarter: 2020Q1

REPORT INFORMATION
  Report Type: Spontaneous
  Country: US (occurrence: US)
  Receive Date: 20200220
  Receipt Date: 20200220
  Transmission Date: 20200409
  Serious: No
  Sender: FDA-Public Use
  Company Number: US-JNJFOC-20200138713

PATIENT
  Sex: Female

DRUGS (2)
  1. MENS ROGAINE EXTRA STRENGTH [Suspect]
     Active Substance: MINOXIDIL
     Dosage: AS RECOMMEND ON BOX TWICE DAILY
     Route: 061
  2. MENS ROGAINE EXTRA STRENGTH [Suspect]
     Active Substance: MINOXIDIL
     Indication: ALOPECIA
     Dosage: AS RECOMMEND ON BOX TWICE DAILY
     Route: 061

REACTIONS (4)
  - Intentional product misuse [Unknown]
  - Overdose [Unknown]
  - Product use complaint [Unknown]
  - Product use issue [Unknown]
